FAERS Safety Report 15691545 (Version 9)
Quarter: 2020Q1

REPORT INFORMATION
  Report Type: Report from Study
  Country: BR (occurrence: BR)
  Receive Date: 20181205
  Receipt Date: 20200121
  Transmission Date: 20200409
  Serious: Yes (Hospitalization, Other)
  Sender: FDA-Public Use
  Company Number: BR-TAKEDA-2018TUS031569

PATIENT
  Age: 29 Year
  Sex: Male

DRUGS (1)
  1. VEDOLIZUMAB [Suspect]
     Active Substance: VEDOLIZUMAB
     Indication: CROHN^S DISEASE
     Dosage: 300 MILLIGRAM
     Route: 042
     Dates: start: 20180831

REACTIONS (11)
  - Nasopharyngitis [Recovering/Resolving]
  - Urinary tract infection [Unknown]
  - Dysphonia [Recovering/Resolving]
  - Pyrexia [Unknown]
  - Off label use [Unknown]
  - Bladder pain [Unknown]
  - Skin lesion inflammation [Unknown]
  - Abdominal pain [Unknown]
  - Intestinal fistula [Unknown]
  - Post procedural complication [Unknown]
  - Influenza [Unknown]

NARRATIVE: CASE EVENT DATE: 20181021
